FAERS Safety Report 10548478 (Version 1)
Quarter: 2014Q4

REPORT INFORMATION
  Report Type: Spontaneous
  Country: US (occurrence: None)
  Receive Date: 20141027
  Receipt Date: 20141027
  Transmission Date: 20150529
  Serious: Yes (Other)
  Sender: FDA-Public Use
  Company Number: None

PATIENT
  Age: 26 Year
  Sex: Male
  Weight: 92.53 kg

DRUGS (7)
  1. OLANZAPINE. [Suspect]
     Active Substance: OLANZAPINE
     Indication: ANGER
     Route: 048
     Dates: start: 20141024, end: 20141025
  2. TRAZODONE [Concomitant]
     Active Substance: TRAZODONE HYDROCHLORIDE
  3. OLANZAPINE. [Suspect]
     Active Substance: OLANZAPINE
     Indication: IMPULSIVE BEHAVIOUR
     Route: 048
     Dates: start: 20141024, end: 20141025
  4. OLANZAPINE. [Suspect]
     Active Substance: OLANZAPINE
  5. ABILIFY [Concomitant]
     Active Substance: ARIPIPRAZOLE
  6. GEMFIBROZIL. [Concomitant]
     Active Substance: GEMFIBROZIL
  7. BENADRYL [Concomitant]
     Active Substance: DIPHENHYDRAMINE HYDROCHLORIDE

REACTIONS (3)
  - Overdose [None]
  - Drooling [None]
  - Speech disorder [None]

NARRATIVE: CASE EVENT DATE: 20141024
